FAERS Safety Report 26107455 (Version 1)
Quarter: 2025Q4

REPORT INFORMATION
  Report Type: Spontaneous
  Country: US (occurrence: US)
  Receive Date: 20251201
  Receipt Date: 20251201
  Transmission Date: 20260118
  Serious: No
  Sender: BIOMARIN
  Company Number: US-SA-2025SA347879

PATIENT
  Age: 5 Year
  Sex: Female

DRUGS (1)
  1. ALDURAZYME [Suspect]
     Active Substance: LARONIDASE
     Indication: Mucopolysaccharidosis I
     Dosage: UNK UNK, QW
     Dates: start: 202505

REACTIONS (2)
  - Urinary glycosaminoglycans increased [Unknown]
  - Neutralising antibodies positive [Unknown]

NARRATIVE: CASE EVENT DATE: 20250101
